FAERS Safety Report 6683113-3 (Version None)
Quarter: 2010Q2

REPORT INFORMATION
  Report Type: 
  Country: None (occurrence: None)
  Receive Date: 20100415
  Receipt Date: 20100412
  Transmission Date: 20101027
  Serious: Yes (Other)
  Sender: FDA-Public Use
  Company Number: GB-MERCK-1002GBR00099

PATIENT
  Age: 64 Year
  Sex: Male

DRUGS (1)
  1. ZOCOR [Suspect]
     Route: 048
     Dates: start: 20070101

REACTIONS (5)
  - DERMATITIS BULLOUS [None]
  - EOSINOPHILIA [None]
  - ERYTHEMA [None]
  - PYREXIA [None]
  - RASH MACULO-PAPULAR [None]
